FAERS Safety Report 4539886-9 (Version None)
Quarter: 2004Q4

REPORT INFORMATION
  Report Type: 
  Country: None (occurrence: None)
  Receive Date: 20041223
  Receipt Date: 20041210
  Transmission Date: 20050328
  Serious: Yes (Hospitalization, Other)
  Sender: FDA-Public Use
  Company Number: 2004105600

PATIENT
  Age: 73 Year
  Sex: Female
  Weight: 55.3 kg

DRUGS (8)
  1. LIPITOR [Suspect]
     Indication: HYPERLIPIDAEMIA
     Dosage: 10 MG (10 MG, 1 IN 1 D), ORAL
     Route: 048
     Dates: start: 20040508, end: 20041105
  2. CARVEDILOL [Suspect]
     Indication: HYPERTENSION
     Dosage: 20 MG (10 MG, 2 IN 1 D), ORAL
     Route: 048
     Dates: start: 20040427, end: 20041105
  3. ANTIHYPERTENSIVES (ANTIHYPERTENSIVES) [Concomitant]
  4. FAMOTIDINE [Concomitant]
  5. VOGLIBOSE (VOGLIBOSE) [Concomitant]
  6. ASPIRIN [Concomitant]
  7. GLIMEPIRIDE [Concomitant]
  8. ALL OTHER THERAPEUTIC PRODUCTS (ALL OTHER THERAPEUTIC PRODUCTS) [Concomitant]

REACTIONS (5)
  - DEHYDRATION [None]
  - DIZZINESS [None]
  - DRUG INTERACTION [None]
  - FEELING ABNORMAL [None]
  - HYPOTENSION [None]
